FAERS Safety Report 6608953-8 (Version None)
Quarter: 2010Q1

REPORT INFORMATION
  Report Type: 
  Country: None (occurrence: None)
  Receive Date: 20100301
  Receipt Date: 20100225
  Transmission Date: 20100710
  Serious: Yes (Life-Threatening)
  Sender: FDA-Public Use
  Company Number: MX-B.I. PHARMACEUTICALS,INC./RIDGEFIELD-2010-MX-00026MX

PATIENT
  Sex: Female

DRUGS (1)
  1. ALUPENT [Suspect]
     Indication: TOCOLYSIS
     Route: 042
     Dates: start: 20100225, end: 20100225

REACTIONS (3)
  - DYSPNOEA [None]
  - OVERDOSE [None]
  - UTERINE CONTRACTIONS DURING PREGNANCY [None]
